FAERS Safety Report 4727328-X (Version None)
Quarter: 2005Q3

REPORT INFORMATION
  Report Type: 
  Country: None (occurrence: None)
  Receive Date: 20050727
  Receipt Date: 20050727
  Transmission Date: 20060218
  Serious: No
  Sender: FDA-Public Use
  Company Number: None

PATIENT
  Age: 54 Year
  Sex: Male
  Weight: 109.8 kg

DRUGS (12)
  1. WARFARIN [Suspect]
     Dosage: VARIOUS, VARIOUS, ORAL
     Route: 048
  2. SALMETEROL [Concomitant]
  3. HYDROCODONE/ACETAMINOPHEN [Concomitant]
  4. ALBUTEROL SULFATE AND IPRATROPIUM BROMIDE [Concomitant]
  5. FLUTICASONE PROP [Concomitant]
  6. MONTELUKAST [Concomitant]
  7. DILTIAZEM [Concomitant]
  8. SIMVASTATIN [Concomitant]
  9. AMIODARONE HCL [Concomitant]
  10. LISINOPRIL [Concomitant]
  11. POTASSIUM CHLORIDE [Concomitant]
  12. ACETAMINOPHEN [Concomitant]

REACTIONS (1)
  - HAEMORRHAGE [None]
